FAERS Safety Report 5302859-2 (Version None)
Quarter: 2007Q2

REPORT INFORMATION
  Report Type: 
  Country: None (occurrence: None)
  Receive Date: 20070419
  Receipt Date: 20070419
  Transmission Date: 20071010
  Serious: Yes (Other)
  Sender: FDA-Public Use
  Company Number: None

PATIENT
  Sex: Female
  Weight: 108.8633 kg

DRUGS (10)
  1. ZOLOFT [Suspect]
     Indication: PANIC ATTACK
     Dosage: 50MG 1/2 TAB PO Q DAY
     Dates: start: 20070104
  2. FIBER LAXATIVE [Concomitant]
  3. PREDNISONE TAB [Concomitant]
  4. ASPIRIN [Concomitant]
  5. DIGEL [Concomitant]
  6. ENTEX LA [Concomitant]
  7. BIFLEX [Concomitant]
  8. MUCUS RELIEF [Concomitant]
  9. BEANO [Concomitant]
  10. GASX [Concomitant]

REACTIONS (3)
  - ABDOMINAL PAIN [None]
  - CONSTIPATION [None]
  - PHARMACEUTICAL PRODUCT COMPLAINT [None]
